FAERS Safety Report 5064265-8 (Version None)
Quarter: 2006Q3

REPORT INFORMATION
  Report Type: 
  Country: None (occurrence: None)
  Receive Date: 20060728
  Receipt Date: 20060630
  Transmission Date: 20061208
  Serious: Yes (Hospitalization)
  Sender: FDA-Public Use
  Company Number: US-AMGEN-STX184957

PATIENT
  Sex: Female

DRUGS (8)
  1. ENBREL [Suspect]
     Indication: RHEUMATOID ARTHRITIS
     Route: 058
     Dates: start: 20050729, end: 20050905
  2. PREDNISONE TAB [Concomitant]
  3. TRAMADOL HCL [Concomitant]
  4. COUMADIN [Concomitant]
  5. LOZOL [Concomitant]
  6. POTASSIUM CHLORIDE [Concomitant]
  7. DIGOXIN [Concomitant]
  8. METOPROLOL TARTRATE [Concomitant]

REACTIONS (3)
  - KNEE ARTHROPLASTY [None]
  - PATELLA FRACTURE [None]
  - POST PROCEDURAL COMPLICATION [None]
